FAERS Safety Report 8379300-9 (Version None)
Quarter: 2012Q2

REPORT INFORMATION
  Report Type: 
  Country: None (occurrence: None)
  Receive Date: 20120523
  Receipt Date: 20120514
  Transmission Date: 20120825
  Serious: Yes (Hospitalization, Other)
  Sender: FDA-Public Use
  Company Number: PHEH2012US010192

PATIENT
  Sex: Male

DRUGS (1)
  1. GLEEVEC [Suspect]
     Indication: MALIGNANT PERITONEAL NEOPLASM
     Dosage: 400 MG, UNK
     Route: 048
     Dates: start: 20120118, end: 20120401

REACTIONS (3)
  - DYSPHAGIA [None]
  - PLEURAL EFFUSION [None]
  - OESOPHAGEAL OBSTRUCTION [None]
